FAERS Safety Report 5323082-1 (Version None)
Quarter: 2007Q2

REPORT INFORMATION
  Report Type: 
  Country: None (occurrence: None)
  Receive Date: 20070507
  Receipt Date: 20070426
  Transmission Date: 20071010
  Serious: Yes (Hospitalization)
  Sender: FDA-Public Use
  Company Number: 2007AL001698

PATIENT
  Age: 5 Year
  Sex: Female
  Weight: 16.8 kg

DRUGS (7)
  1. CLONIDINE HCL [Suspect]
     Indication: RESTLESSNESS
     Dosage: 0.1 MG; PRN; GT
  2. NITROUS OXIDE W/ OXYGEN [Concomitant]
  3. SEVOFLURANE [Concomitant]
  4. RANITIDINE [Concomitant]
  5. LACTULOSE [Concomitant]
  6. BACLOFEN [Concomitant]
  7. OXYGEN [Concomitant]

REACTIONS (8)
  - ASPIRATION TRACHEAL ABNORMAL [None]
  - BLOOD PRESSURE DECREASED [None]
  - CARDIAC ARREST [None]
  - CHEST X-RAY ABNORMAL [None]
  - INCREASED BRONCHIAL SECRETION [None]
  - LEFT VENTRICULAR DYSFUNCTION [None]
  - MUSCLE SPASTICITY [None]
  - SINUS BRADYCARDIA [None]
